FAERS Safety Report 23093689 (Version 1)
Quarter: 2023Q4

REPORT INFORMATION
  Report Type: Spontaneous
  Country: DE (occurrence: DE)
  Receive Date: 20231023
  Receipt Date: 20231023
  Transmission Date: 20240110
  Serious: No
  Sender: FDA-Public Use
  Company Number: DE-Blueprint Medicines Corporation-SP-DE-2023-001646

PATIENT
  Sex: Female

DRUGS (1)
  1. AVAPRITINIB [Suspect]
     Active Substance: AVAPRITINIB
     Indication: Systemic mastocytosis
     Route: 065

REACTIONS (4)
  - Periorbital oedema [Unknown]
  - Lacrimation increased [Unknown]
  - Eye pain [Unknown]
  - Visual impairment [Unknown]
